FAERS Safety Report 4376923-9 (Version None)
Quarter: 2004Q2

REPORT INFORMATION
  Report Type: 
  Country: None (occurrence: None)
  Receive Date: 20040608
  Receipt Date: 20040524
  Transmission Date: 20050107
  Serious: Yes (Hospitalization)
  Sender: FDA-Public Use
  Company Number: FR-JNJFOC-20040302992

PATIENT
  Age: 82 Year
  Sex: Female
  Weight: 72 kg

DRUGS (5)
  1. REMINYL [Suspect]
     Indication: DEMENTIA ALZHEIMER'S TYPE
     Dosage: SEE IMAGE
     Route: 048
     Dates: start: 20030320
  2. LANSOPRAZOLE [Concomitant]
  3. DAFALGAM (PARACETAMOL) [Concomitant]
  4. XANAX [Concomitant]
  5. IMOVANE (ZOPICLONE) [Concomitant]

REACTIONS (4)
  - ARTHRALGIA [None]
  - HYPERTENSION [None]
  - MUSCLE CRAMP [None]
  - PAIN IN EXTREMITY [None]
